FAERS Safety Report 6850147-5 (Version None)
Quarter: 2010Q3

REPORT INFORMATION
  Report Type: 
  Country: None (occurrence: None)
  Receive Date: 20100716
  Receipt Date: 20071009
  Transmission Date: 20110219
  Serious: No
  Sender: FDA-Public Use
  Company Number: US-PFIZER INC-2007086229

PATIENT
  Sex: Female
  Weight: 59 kg

DRUGS (4)
  1. CHANTIX [Suspect]
     Indication: SMOKING CESSATION THERAPY
     Route: 048
     Dates: start: 20071002
  2. AMOXICILLIN [Suspect]
     Indication: SINUSITIS
     Route: 048
     Dates: start: 20070927, end: 20071001
  3. MULTI-VITAMINS [Concomitant]
  4. PREMARIN [Concomitant]

REACTIONS (4)
  - BLISTER [None]
  - FEELING HOT [None]
  - PRURITUS [None]
  - URTICARIA [None]
